FAERS Safety Report 14377950 (Version 1)
Quarter: 2018Q1

REPORT INFORMATION
  Report Type: Spontaneous
  Country: US (occurrence: US)
  Receive Date: 20180111
  Receipt Date: 20180111
  Transmission Date: 20180509
  Serious: No
  Sender: FDA-Public Use
  Company Number: US-TEVA-2018-US-844368

PATIENT
  Sex: Female

DRUGS (1)
  1. AZITHROMYCIN ANHYDROUS. [Suspect]
     Active Substance: AZITHROMYCIN ANHYDROUS
     Dosage: 250 MILLIGRAM DAILY;
     Route: 065

REACTIONS (15)
  - Dysphagia [Recovered/Resolved]
  - Vulvovaginal burning sensation [Recovered/Resolved]
  - Urticaria [Recovered/Resolved]
  - Rash [Recovered/Resolved]
  - Pyrexia [Recovered/Resolved]
  - Lip swelling [Recovered/Resolved]
  - Vaginal discharge [Recovered/Resolved]
  - Fungal infection [Recovered/Resolved]
  - Diarrhoea [Recovering/Resolving]
  - Nausea [Recovered/Resolved]
  - Swollen tongue [Recovered/Resolved]
  - Muscle spasms [Recovered/Resolved]
  - Tinnitus [Recovered/Resolved]
  - Pharyngeal oedema [Recovered/Resolved]
  - Vulvovaginal pain [Recovered/Resolved]
